FAERS Safety Report 6528080-8 (Version None)
Quarter: 2010Q1

REPORT INFORMATION
  Report Type: 
  Country: None (occurrence: None)
  Receive Date: 20100105
  Receipt Date: 20100105
  Transmission Date: 20100710
  Serious: Yes (Hospitalization)
  Sender: FDA-Public Use
  Company Number: None

PATIENT
  Age: 85 Year
  Sex: Male

DRUGS (1)
  1. WARFARIN [Suspect]
     Indication: ATRIAL FIBRILLATION
     Dosage: 4 MG HS PO
     Route: 048
     Dates: start: 19881207

REACTIONS (5)
  - ANAEMIA [None]
  - DIARRHOEA [None]
  - GASTRIC HAEMORRHAGE [None]
  - INTERNATIONAL NORMALISED RATIO INCREASED [None]
  - RECTAL HAEMORRHAGE [None]
